FAERS Safety Report 12918025 (Version 1)
Quarter: 2016Q4

REPORT INFORMATION
  Report Type: Spontaneous
  Country: US (occurrence: US)
  Receive Date: 20161107
  Receipt Date: 20161107
  Transmission Date: 20170207
  Serious: No
  Sender: FDA-Public Use
  Company Number: US-ALLERGAN-1655020US

PATIENT
  Sex: Male

DRUGS (4)
  1. METOPROLOL. [Concomitant]
     Active Substance: METOPROLOL
     Indication: HYPERTENSION
     Dosage: 25 MG, UNK
     Route: 048
  2. MIRALAX [Concomitant]
     Active Substance: POLYETHYLENE GLYCOL 3350
     Dosage: UNK
     Route: 048
  3. RAPAFLO [Suspect]
     Active Substance: SILODOSIN
     Indication: PRURITUS
  4. RAPAFLO [Suspect]
     Active Substance: SILODOSIN
     Indication: RASH

REACTIONS (2)
  - Fall [Recovered/Resolved]
  - Rash [Recovered/Resolved]
